FAERS Safety Report 6353544-X (Version None)
Quarter: 2009Q3

REPORT INFORMATION
  Report Type: 
  Country: None (occurrence: None)
  Receive Date: 20090912
  Receipt Date: 20090622
  Transmission Date: 20100115
  Serious: No
  Sender: FDA-Public Use
  Company Number: US-ABBOTT-08P-163-0462131-00

PATIENT
  Sex: Male
  Weight: 79.45 kg

DRUGS (6)
  1. HUMIRA [Suspect]
     Indication: ANKYLOSING SPONDYLITIS
     Route: 058
     Dates: start: 20080101
  2. HUMIRA [Suspect]
     Dosage: PRE-FILLED SYRINGE
     Dates: start: 20070101, end: 20080101
  3. METHOTREXATE [Concomitant]
     Indication: ANKYLOSING SPONDYLITIS
  4. SULFASALAZINE [Concomitant]
     Indication: ANKYLOSING SPONDYLITIS
  5. PREDNISONE [Concomitant]
     Indication: ANKYLOSING SPONDYLITIS
  6. FOLIC ACID [Concomitant]
     Indication: ANKYLOSING SPONDYLITIS

REACTIONS (1)
  - INCORRECT DOSE ADMINISTERED [None]
